FAERS Safety Report 19722480 (Version 1)
Quarter: 2021Q3

REPORT INFORMATION
  Report Type: Report from Study
  Country: US (occurrence: US)
  Receive Date: 20210819
  Receipt Date: 20210819
  Transmission Date: 20211014
  Serious: No
  Sender: FDA-Public Use
  Company Number: US-GW PHARMA-202108USGW03984

PATIENT

DRUGS (2)
  1. EPIDIOLEX [Suspect]
     Active Substance: CANNABIDIOL
     Indication: PRODUCT USED FOR UNKNOWN INDICATION
     Dosage: 9.2 MG/KG/DAY, 350 MILLIGRAM, BID
     Route: 048
  2. EPIDIOLEX [Suspect]
     Active Substance: CANNABIDIOL
     Dosage: 7.9 MG/KG/DAY, 300 MILLIGRAM, BID, DOSE DECREASE, PRESCRIPTION STATES 2 ML BID
     Route: 048

REACTIONS (3)
  - Product prescribing issue [Unknown]
  - Fatigue [Unknown]
  - Memory impairment [Unknown]
